FAERS Safety Report 16767546 (Version 1)
Quarter: 2019Q3

REPORT INFORMATION
  Report Type: Spontaneous
  Country: US (occurrence: US)
  Receive Date: 20190903
  Receipt Date: 20190903
  Transmission Date: 20191005
  Serious: Yes (Other)
  Sender: FDA-Public Use
  Company Number: US-PUMA BIOTECHNOLOGY, LTD.-2019US008854

PATIENT

DRUGS (1)
  1. NERLYNX [Suspect]
     Active Substance: NERATINIB
     Indication: METASTATIC NEOPLASM
     Dosage: UNKNOWN
     Route: 065

REACTIONS (3)
  - Ascites [Unknown]
  - Off label use [Unknown]
  - Metastatic neoplasm [Unknown]
